FAERS Safety Report 19086110 (Version 1)
Quarter: 2021Q2

REPORT INFORMATION
  Report Type: Spontaneous
  Country: CN (occurrence: CN)
  Receive Date: 20210402
  Receipt Date: 20210402
  Transmission Date: 20210717
  Serious: Yes (Hospitalization, Other)
  Sender: FDA-Public Use
  Company Number: CN-PFIZER INC-2021338684

PATIENT
  Age: 23 Year
  Sex: Male
  Weight: 98 kg

DRUGS (5)
  1. METHYLPREDNISOLONE. [Concomitant]
     Active Substance: METHYLPREDNISOLONE
     Dosage: UNK
  2. THALIDOMIDE [Concomitant]
     Active Substance: THALIDOMIDE
     Dosage: UNK
  3. ALFACALCIDOL [Concomitant]
     Active Substance: ALFACALCIDOL
     Dosage: UNK
  4. XELJANZ [Suspect]
     Active Substance: TOFACITINIB CITRATE
     Dosage: 5 MG, 1X/DAY
     Route: 048
     Dates: start: 20130201, end: 20210325
  5. CALCIUM CARBONATE WITH D3 [Concomitant]
     Active Substance: CALCIUM CARBONATE\CHOLECALCIFEROL
     Dosage: UNK

REACTIONS (8)
  - Behcet^s syndrome [Unknown]
  - Impaired healing [Recovering/Resolving]
  - Red blood cell count increased [Unknown]
  - Infected skin ulcer [Unknown]
  - White blood cell count decreased [Unknown]
  - Purulent discharge [Unknown]
  - Granulocyte count decreased [Recovering/Resolving]
  - Limb fracture [Unknown]

NARRATIVE: CASE EVENT DATE: 2014
